FAERS Safety Report 6360580-6 (Version None)
Quarter: 2009Q3

REPORT INFORMATION
  Report Type: 
  Country: None (occurrence: None)
  Receive Date: 20090915
  Receipt Date: 20090902
  Transmission Date: 20100115
  Serious: Yes (Hospitalization)
  Sender: FDA-Public Use
  Company Number: MOZO-1000247

PATIENT
  Age: 41 Year
  Sex: Male
  Weight: 71.7 kg

DRUGS (34)
  1. MOZOBIL [Suspect]
     Indication: ACUTE MYELOID LEUKAEMIA
     Dosage: 6624 MCG, QD,
     Dates: start: 20090604, end: 20090607
  2. MOZOBIL [Suspect]
     Indication: HAEMATOPOIETIC STEM CELL MOBILISATION
     Dosage: 6624 MCG, QD,
     Dates: start: 20090604, end: 20090607
  3. MOZOBIL [Suspect]
     Indication: PREMEDICATION
     Dosage: 6624 MCG, QD,
     Dates: start: 20090604, end: 20090607
  4. THYMOGLOBULIN [Concomitant]
  5. ALUMINIUM W (ALUMINIUM, MAGNESIUM HYDROXIDE, SIMETICONE) [Concomitant]
  6. CARVEDILOL [Concomitant]
  7. COLECALCIFEROL (COLECALCIFEROL) [Concomitant]
  8. DEXTROSE [Concomitant]
  9. DULOXETINE HYDROCHLORIDE [Concomitant]
  10. FOLIC ACID [Concomitant]
  11. FOSCARNET [Concomitant]
  12. GABAPENTIN [Concomitant]
  13. GLIPIZIDE [Concomitant]
  14. HYDROCORTISONE SODIUM SUCCINATE [Concomitant]
  15. HYDROMORPHONE HCL [Concomitant]
  16. INSULIN REGULAR (HUMAN) (INSULIN HUMAN) [Concomitant]
  17. LORAZEPAM [Concomitant]
  18. MAGNESIUM OXIDE (MAGNESIUM OXIDE) [Concomitant]
  19. MAGNESIUM SULFATE [Concomitant]
  20. METHYLPREDNISOLONE [Concomitant]
  21. MOXIFLOXACIN HCL [Concomitant]
  22. MULTIPLE VITAMINS 9ASCORBIC ACID, ERGOCALCIFEROL, FOLIC ACID, RETINOL, [Concomitant]
  23. OMEPRAZOLE [Concomitant]
  24. ONDANSETRON HYDROCHLORIDE [Concomitant]
  25. OXYBUTYNIN CHLORIDE (OXYBUTYNIN HYDROCHLORIDE) [Concomitant]
  26. OXYMORPHONE HYDROCHLORIDE (OXYMORPHONE HYDROCHLORIDE) [Concomitant]
  27. OYSTER SHELL CALCIUM (CALCIUM CARBONATE) [Concomitant]
  28. POSACONAZOLE [Concomitant]
  29. POTASSIUM CHLORIDE (POTASSIUM CHLORIDE, SODIUM CHLORIDE) [Concomitant]
  30. DOCUSATE SODIUM W SENNOSIDES (DOCUSATE SODIUM W SENNOSIDES) [Concomitant]
  31. SODIUM CHLORIDE 0.9% [Concomitant]
  32. SODIUM PHOSPHATE (SODIUM PHOSPHATE DIBASIC, SODIUM PHOSPHATE MONOBASIC [Concomitant]
  33. TACROLIMUS (TACOLIMUS) [Concomitant]
  34. VALACICLOVIR HYDROCHLORIDE (VALACICLOVIR HYDROCHLORIDE) [Concomitant]

REACTIONS (6)
  - BK VIRUS INFECTION [None]
  - CONSTIPATION [None]
  - CYSTITIS [None]
  - HYDRONEPHROSIS [None]
  - RENAL FAILURE ACUTE [None]
  - VIRUS URINE TEST POSITIVE [None]
